FAERS Safety Report 8522126-3 (Version None)
Quarter: 2012Q3

REPORT INFORMATION
  Report Type: 
  Country: None (occurrence: None)
  Receive Date: 20120719
  Receipt Date: 20120710
  Transmission Date: 20120928
  Serious: Yes (Other)
  Sender: FDA-Public Use
  Company Number: FR-FRI-1000037213

PATIENT
  Age: 25 Year
  Sex: Female

DRUGS (7)
  1. CLOBAZAM [Concomitant]
  2. DEPAKENE [Concomitant]
  3. ESCITALOPRAM [Suspect]
     Dosage: 10 MG
     Route: 048
  4. CLONAZEPAM [Concomitant]
  5. ESCITALOPRAM [Suspect]
     Dosage: 5 MG
     Route: 048
  6. ALPRAZOLAM [Concomitant]
  7. ATHYMIL [Concomitant]

REACTIONS (1)
  - EPILEPSY [None]
